FAERS Safety Report 17957519 (Version 1)
Quarter: 2020Q2

REPORT INFORMATION
  Report Type: Spontaneous
  Country: CI (occurrence: CI)
  Receive Date: 20200629
  Receipt Date: 20200629
  Transmission Date: 20200714
  Serious: Yes (Other)
  Sender: FDA-Public Use
  Company Number: CI-SHIRE-CI202019987

PATIENT

DRUGS (1)
  1. COAGULATION FACTOR VIII(RECOMBINANT) [Suspect]
     Active Substance: ANTIHEMOPHILIC FACTOR, HUMAN RECOMBINANT
     Indication: FACTOR VIII DEFICIENCY
     Dosage: 3000 INTERNATIONAL UNIT, OTHER
     Route: 050

REACTIONS (2)
  - Haemorrhage [Unknown]
  - Underdose [Unknown]
